FAERS Safety Report 14330167 (Version 1)
Quarter: 2017Q4

REPORT INFORMATION
  Report Type: Spontaneous
  Country: FI (occurrence: FI)
  Receive Date: 20171227
  Receipt Date: 20171227
  Transmission Date: 20180321
  Serious: Yes (Other)
  Sender: FDA-Public Use
  Company Number: FI-PFIZER INC-2017543567

PATIENT
  Sex: Male

DRUGS (1)
  1. CYTOTEC [Suspect]
     Active Substance: MISOPROSTOL
     Indication: INDUCED LABOUR
     Dosage: 3 TABLETS (DF), UNK
     Route: 064
     Dates: start: 20160715, end: 20160715

REACTIONS (2)
  - Hypotonia [Unknown]
  - Pulse absent [Recovered/Resolved]

NARRATIVE: CASE EVENT DATE: 20160715
